FAERS Safety Report 6540612-2 (Version None)
Quarter: 2010Q1

REPORT INFORMATION
  Report Type: 
  Country: None (occurrence: None)
  Receive Date: 20100112
  Receipt Date: 20091013
  Transmission Date: 20100710
  Serious: No
  Sender: FDA-Public Use
  Company Number: 2009-00669

PATIENT
  Age: 64 Year
  Sex: Female
  Weight: 65.7716 kg

DRUGS (1)
  1. COLD REMEDY ORAL MIST [Suspect]
     Dosage: QD
     Dates: start: 20091012, end: 20091012

REACTIONS (1)
  - AGEUSIA [None]
